FAERS Safety Report 11938591 (Version 2)
Quarter: 2016Q1

REPORT INFORMATION
  Report Type: Spontaneous
  Country: US (occurrence: US)
  Receive Date: 20160122
  Receipt Date: 20160229
  Transmission Date: 20160526
  Serious: No
  Sender: FDA-Public Use
  Company Number: US-TEVA-627068USA

PATIENT
  Age: 41 Year
  Sex: Female

DRUGS (16)
  1. AUGMENTIN SUS [Concomitant]
  2. FLAX SEED [Concomitant]
     Active Substance: FLAX SEED
  3. COPAXONE [Suspect]
     Active Substance: GLATIRAMER ACETATE
     Indication: MULTIPLE SCLEROSIS
     Route: 058
     Dates: start: 20150325
  4. AZITHROMYCIN ANHYDROUS. [Concomitant]
     Active Substance: AZITHROMYCIN ANHYDROUS
  5. FEXOFENADINE [Concomitant]
     Active Substance: FEXOFENADINE\FEXOFENADINE HYDROCHLORIDE
  6. AMANTADINE [Concomitant]
     Active Substance: AMANTADINE
  7. ZOLPIDEM [Concomitant]
     Active Substance: ZOLPIDEM\ZOLPIDEM TARTRATE
  8. GABAPENTIN. [Concomitant]
     Active Substance: GABAPENTIN
  9. IMODIUM-D [Concomitant]
  10. VITAMIN D [Concomitant]
     Active Substance: CHOLECALCIFEROL
  11. BENZONATATE. [Concomitant]
     Active Substance: BENZONATATE
  12. ESTRADIOL. [Concomitant]
     Active Substance: ESTRADIOL
  13. ALLEGRA [Concomitant]
     Active Substance: FEXOFENADINE HYDROCHLORIDE
  14. ASPIRIN. [Concomitant]
     Active Substance: ASPIRIN
  15. LABETALOL [Concomitant]
     Active Substance: LABETALOL\LABETALOL HYDROCHLORIDE
  16. SLOW MAGNESIUM/CALCIUM [Concomitant]

REACTIONS (3)
  - Anxiety [Recovered/Resolved]
  - Flushing [Recovered/Resolved]
  - Injection related reaction [Recovered/Resolved]

NARRATIVE: CASE EVENT DATE: 20151203
